FAERS Safety Report 9204344 (Version 1)
Quarter: 2013Q1

REPORT INFORMATION
  Report Type: Spontaneous
  Country: US (occurrence: None)
  Receive Date: 20120709
  Receipt Date: 20120709
  Transmission Date: 20140127
  Serious: No
  Sender: FDA-Public Use
  Company Number: 2012HGS-003416

PATIENT
  Age: 48 Year
  Sex: Female
  Weight: 70.31 kg

DRUGS (8)
  1. BENLYSTA [Suspect]
     Dosage: 1 IN 28 D
     Route: 041
     Dates: start: 20111020, end: 20120113
  2. NAPROXEN (NAPROXEN) (NAPROXEN) [Concomitant]
  3. PREDNISONE (PREDNISONE) (PREDNISONE) [Concomitant]
  4. VITAMIN D (ERGOCALCIFEROL) (ERGOCALCIFEROL) [Concomitant]
  5. CALCIUM (CALCIUM) (CALCIUM) [Concomitant]
  6. CABERLIN (CABERGOLINE) (CABERGOLINE) [Concomitant]
  7. SIMVASTATIN (SIMVASTATIN) (SIMVASTATIN) [Concomitant]
  8. VITAMIN B12 (CYANOCOBALMIN) (CYANOCOBALMIN) [Concomitant]

REACTIONS (1)
  - No therapeutic response [None]
